FAERS Safety Report 4504235-9 (Version None)
Quarter: 2004Q4

REPORT INFORMATION
  Report Type: 
  Country: None (occurrence: None)
  Receive Date: 20041118
  Receipt Date: 20041111
  Transmission Date: 20050328
  Serious: Yes (Hospitalization)
  Sender: FDA-Public Use
  Company Number: US-ABBOTT-04P-163-0280257-00

PATIENT
  Age: 56 Year
  Sex: Female

DRUGS (8)
  1. SYNTHROID [Suspect]
     Indication: HYPOTHYROIDISM
     Route: 048
     Dates: start: 20030601, end: 20030601
  2. SYNTHROID [Suspect]
     Route: 048
     Dates: end: 20030601
  3. SYNTHROID [Suspect]
     Route: 048
     Dates: start: 20030701, end: 20031201
  4. SYNTHROID [Suspect]
     Route: 048
     Dates: start: 20031201, end: 20040901
  5. SYNTHROID [Suspect]
     Route: 048
     Dates: start: 20040901
  6. CONJUGATED ESTROGEN [Concomitant]
     Indication: DRUG USE FOR UNKNOWN INDICATION
     Route: 048
     Dates: start: 19940101
  7. CRESTOR [Concomitant]
     Indication: BLOOD CHOLESTEROL INCREASED
     Route: 048
  8. SERTRALINE HYDROCHLORIDE [Concomitant]
     Indication: DRUG USE FOR UNKNOWN INDICATION
     Route: 048

REACTIONS (10)
  - ACCIDENTAL OVERDOSE [None]
  - BLINDNESS [None]
  - BLOOD THYROID STIMULATING HORMONE DECREASED [None]
  - DEAFNESS [None]
  - DIZZINESS [None]
  - FEELING ABNORMAL [None]
  - HYPOGLYCAEMIA [None]
  - NAUSEA [None]
  - OSTEOPOROSIS [None]
  - PALPITATIONS [None]
